FAERS Safety Report 7238173-8 (Version None)
Quarter: 2011Q1

REPORT INFORMATION
  Report Type: 
  Country: None (occurrence: None)
  Receive Date: 20110121
  Receipt Date: 20110112
  Transmission Date: 20110831
  Serious: Yes (Death, Life-Threatening, Hospitalization)
  Sender: FDA-Public Use
  Company Number: JP-JNJFOC-20101208611

PATIENT
  Sex: Female
  Weight: 80 kg

DRUGS (16)
  1. PYDOXAL [Concomitant]
     Route: 048
  2. ONEALFA [Concomitant]
     Route: 048
  3. LOXONIN [Concomitant]
     Route: 048
  4. MEDROL [Suspect]
     Indication: PRODUCT USED FOR UNKNOWN INDICATION
     Route: 048
  5. PROMAC (POLAPREZINC) [Concomitant]
     Route: 048
  6. REMICADE [Suspect]
     Route: 042
  7. OMEPRAZOLE [Concomitant]
     Route: 048
  8. REMICADE [Suspect]
     Indication: RHEUMATOID ARTHRITIS
     Route: 042
  9. VERAPAMIL HCL [Concomitant]
     Route: 048
  10. BLOPRESS [Concomitant]
     Route: 048
  11. REMICADE [Suspect]
     Route: 042
  12. METHOTREXATE [Suspect]
     Indication: RHEUMATOID ARTHRITIS
     Route: 048
  13. ISCOTIN [Concomitant]
     Route: 048
  14. REMICADE [Suspect]
     Route: 042
  15. REMICADE [Suspect]
     Route: 042
  16. CALBLOCK [Concomitant]
     Route: 048

REACTIONS (3)
  - PNEUMOCYSTIS JIROVECI PNEUMONIA [None]
  - STOMATITIS [None]
  - CYTOMEGALOVIRUS TEST POSITIVE [None]
